FAERS Safety Report 5122297-5 (Version None)
Quarter: 2006Q4

REPORT INFORMATION
  Report Type: 
  Country: None (occurrence: None)
  Receive Date: 20061003
  Receipt Date: 20060721
  Transmission Date: 20070319
  Serious: Yes (Congenital Anomaly, Other)
  Sender: FDA-Public Use
  Company Number: 2006US-03925

PATIENT
  Sex: Female

DRUGS (1)
  1. ISOTRETINOIN [Suspect]

REACTIONS (4)
  - CONGENITAL ANOMALY IN OFFSPRING [None]
  - DRUG EXPOSURE DURING PREGNANCY [None]
  - TRANSMISSION OF DRUG VIA SEMEN [None]
  - TRISOMY 21 [None]
